FAERS Safety Report 9207700 (Version 1)
Quarter: 2013Q1

REPORT INFORMATION
  Report Type: Spontaneous
  Country: US (occurrence: None)
  Receive Date: 20120817
  Receipt Date: 20120817
  Transmission Date: 20140127
  Serious: Yes (Hospitalization, Other)
  Sender: FDA-Public Use
  Company Number: ADR-2012-00664

PATIENT
  Age: 61 Year
  Sex: Male

DRUGS (2)
  1. BACLOFEN INTRATHECAL (BACLOFEN INJECTION) [Suspect]
     Indication: MUSCLE SPASTICITY
     Route: 037
  2. BACLOFEN INTRATHECAL (BACLOFEN INJECTION) [Suspect]
     Indication: PARAPARESIS
     Route: 037

REACTIONS (2)
  - Overdose [None]
  - Somnolence [None]
